FAERS Safety Report 7209837-7 (Version None)
Quarter: 2011Q1

REPORT INFORMATION
  Report Type: 
  Country: None (occurrence: None)
  Receive Date: 20110104
  Receipt Date: 20100916
  Transmission Date: 20110831
  Serious: Yes (Other)
  Sender: FDA-Public Use
  Company Number: FR-CELGENEUS-056-21880-10081690

PATIENT
  Age: 67 Year
  Sex: Female

DRUGS (1)
  1. REVLIMID [Suspect]
     Route: 048
     Dates: start: 20070906

REACTIONS (5)
  - NEUTROPENIA [None]
  - C-REACTIVE PROTEIN INCREASED [None]
  - PYREXIA [None]
  - COUGH [None]
  - PNEUMONIA VIRAL [None]
